FAERS Safety Report 8967719 (Version 1)
Quarter: 2012Q4

REPORT INFORMATION
  Report Type: Spontaneous
  Country: US (occurrence: None)
  Receive Date: 20121213
  Receipt Date: 20121213
  Transmission Date: 20130627
  Serious: Yes (Other)
  Sender: FDA-Public Use
  Company Number: None

PATIENT
  Age: 55 Year
  Sex: Male

DRUGS (1)
  1. TEMODAR [Suspect]
     Dosage: 450 mg daily po
     Route: 048
     Dates: start: 20111017, end: 20121205

REACTIONS (1)
  - Convulsion [None]
